FAERS Safety Report 7483637-5 (Version None)
Quarter: 2011Q2

REPORT INFORMATION
  Report Type: 
  Country: None (occurrence: None)
  Receive Date: 20110517
  Receipt Date: 20110511
  Transmission Date: 20111010
  Serious: No
  Sender: FDA-Public Use
  Company Number: US-PFIZER INC-2011076608

PATIENT
  Sex: Male
  Weight: 90.703 kg

DRUGS (3)
  1. SYNTHROID [Concomitant]
     Indication: HYPOTHYROIDISM
     Dosage: 0.200 UG, DAILY IN THE MORNING
     Route: 048
  2. ZOCOR [Concomitant]
     Indication: BLOOD CHOLESTEROL ABNORMAL
     Dosage: 40 MG, DAILY AT NIGHT
     Route: 048
  3. VIAGRA [Suspect]
     Indication: ERECTILE DYSFUNCTION
     Dosage: 100 MG, UNK
     Route: 048
     Dates: start: 20110403, end: 20110403

REACTIONS (3)
  - DRUG INEFFECTIVE [None]
  - SELF ESTEEM DECREASED [None]
  - EMOTIONAL DISORDER [None]
